FAERS Safety Report 13285569 (Version 1)
Quarter: 2017Q1

REPORT INFORMATION
  Report Type: Spontaneous
  Country: GR (occurrence: GR)
  Receive Date: 20170302
  Receipt Date: 20170302
  Transmission Date: 20170428
  Serious: Yes (Death, Other)
  Sender: FDA-Public Use
  Company Number: GR-ACORDA-ACO_134371_2017

PATIENT
  Sex: Male

DRUGS (1)
  1. QUTENZA [Suspect]
     Active Substance: CAPSAICIN
     Indication: NEURALGIA
     Dosage: 1 DF (PATCH), UNKNOWN FREQ.
     Route: 003
     Dates: start: 20160201, end: 20160201

REACTIONS (1)
  - Neoplasm malignant [Fatal]
